FAERS Safety Report 16538245 (Version 1)
Quarter: 2019Q3

REPORT INFORMATION
  Report Type: Spontaneous
  Country: DE (occurrence: DE)
  Receive Date: 20190708
  Receipt Date: 20190708
  Transmission Date: 20191004
  Serious: Yes (Other)
  Sender: FDA-Public Use
  Company Number: DE-009507513-1907DEU000621

PATIENT
  Sex: Female
  Weight: 56 kg

DRUGS (1)
  1. NUVARING [Suspect]
     Active Substance: ETHINYL ESTRADIOL\ETONOGESTREL
     Dosage: UNK
     Route: 067
     Dates: start: 20130101

REACTIONS (8)
  - Loss of libido [Unknown]
  - Irritable bowel syndrome [Unknown]
  - Cystitis [Unknown]
  - Fungal infection [Unknown]
  - Lipoedema [Unknown]
  - Dyspareunia [Unknown]
  - Migraine [Unknown]
  - Fluid retention [Unknown]
